FAERS Safety Report 4528516-8 (Version None)
Quarter: 2004Q4

REPORT INFORMATION
  Report Type: 
  Country: None (occurrence: None)
  Receive Date: 20041216
  Receipt Date: 20040309
  Transmission Date: 20050328
  Serious: No
  Sender: FDA-Public Use
  Company Number: US-BRISTOL-MYERS SQUIBB COMPANY-12528709

PATIENT
  Age: 64 Year
  Sex: Female
  Weight: 74 kg

DRUGS (3)
  1. QUESTRAN [Suspect]
     Indication: GASTROINTESTINAL DISORDER
     Route: 048
  2. VASERETIC [Concomitant]
  3. NORVASC [Concomitant]

REACTIONS (1)
  - GASTROINTESTINAL DISORDER [None]
